FAERS Safety Report 17304822 (Version 1)
Quarter: 2020Q1

REPORT INFORMATION
  Report Type: Spontaneous
  Country: BR (occurrence: BR)
  Receive Date: 20200122
  Receipt Date: 20200122
  Transmission Date: 20200409
  Serious: Yes (Hospitalization)
  Sender: FDA-Public Use
  Company Number: BR-BAXTER-2020BAX001009

PATIENT
  Age: 58 Year
  Sex: Female
  Weight: 56.2 kg

DRUGS (18)
  1. BAXTER GLICOSE 5% - 500 ML [Suspect]
     Active Substance: DEXTROSE
     Dosage: AC PROTOCOL; LAST DOSE PRIOR TO EVENT; DOXORUBICIN 60 MG/M2 + 5% GLUCOSE SERUM 50 ML
     Route: 065
     Dates: start: 20191120, end: 20191120
  2. JARDIANCE [Concomitant]
     Active Substance: EMPAGLIFLOZIN
     Indication: PRODUCT USED FOR UNKNOWN INDICATION
     Dosage: 1 CAP PER DAY
     Route: 065
  3. CLONIDINE. [Concomitant]
     Active Substance: CLONIDINE
     Indication: PRODUCT USED FOR UNKNOWN INDICATION
     Dosage: 1 CAP PER NIGHT
     Route: 065
  4. CLORETO DE S?DIO - BAXTER [Suspect]
     Active Substance: SODIUM CHLORIDE
     Dosage: AC PROTOCOL; LAST DOSE PRIOR TO EVENT; CYCLOPHOSPHAMIDE 600 MG/M2 + SALINE SOLUTION [NS] 250 ML
     Route: 065
     Dates: start: 20191120, end: 20191120
  5. ESOMEPRAZOLE. [Concomitant]
     Active Substance: ESOMEPRAZOLE MAGNESIUM
     Indication: PRODUCT USED FOR UNKNOWN INDICATION
     Dosage: 1 CAP PER DAY WITH EMPTY STOMACH
     Route: 065
  6. CONCOR [Concomitant]
     Active Substance: BISOPROLOL FUMARATE
     Indication: PRODUCT USED FOR UNKNOWN INDICATION
     Dosage: 1 CAP PER DAY
     Route: 065
  7. EMEND [Concomitant]
     Active Substance: APREPITANT
     Indication: PREMEDICATION
     Route: 065
  8. DEXAMETHASONE. [Concomitant]
     Active Substance: DEXAMETHASONE
     Indication: PREMEDICATION
     Route: 065
  9. FAULDOX [Suspect]
     Active Substance: DOXORUBICIN HYDROCHLORIDE
     Dosage: AC PROTOCOL; LAST DOSE PRIOR TO EVENT; DOXORUBICIN 60 MG/M2 + 5% GLUCOSE SERUM 50 ML
     Route: 065
     Dates: start: 20191120, end: 20191120
  10. GLICLAZIDA [Concomitant]
     Active Substance: GLICLAZIDE
     Indication: PRODUCT USED FOR UNKNOWN INDICATION
     Dosage: 1 CAP PER DAY WITH EMPTY STOMACH
     Route: 065
  11. FAULDOX [Suspect]
     Active Substance: DOXORUBICIN HYDROCHLORIDE
     Indication: BREAST CANCER FEMALE
     Dosage: AC PROTOCOL; DOXORUBICIN + 5% GLUCOSE SERUM
     Route: 065
     Dates: start: 20191106
  12. LOSARTAN. [Concomitant]
     Active Substance: LOSARTAN
     Indication: PRODUCT USED FOR UNKNOWN INDICATION
     Dosage: 1 CAP EVERY 12 HOURS
     Route: 065
  13. GENUXAL [Suspect]
     Active Substance: CYCLOPHOSPHAMIDE
     Indication: BREAST CANCER FEMALE
     Dosage: AC PROTOCOL; CYCLOPHOSPHAMIDE + NS
     Route: 065
     Dates: start: 20191106
  14. CLORETO DE S?DIO - BAXTER [Suspect]
     Active Substance: SODIUM CHLORIDE
     Indication: MEDICATION DILUTION
     Dosage: AC PROTOCOL; CYCLOPHOSPHAMIDE + SALINE SOLUTION
     Route: 065
     Dates: start: 20191106
  15. ROSUVASTATIN. [Concomitant]
     Active Substance: ROSUVASTATIN
     Indication: PRODUCT USED FOR UNKNOWN INDICATION
     Dosage: 1 CAP PER NIGHT
     Route: 065
  16. BAXTER GLICOSE 5% - 500 ML [Suspect]
     Active Substance: DEXTROSE
     Indication: MEDICATION DILUTION
     Dosage: AC PROTOCOL; DOXORUBICIN + GLUCOSE
     Route: 065
     Dates: start: 20191106
  17. GALVUS MET [Concomitant]
     Active Substance: METFORMIN HYDROCHLORIDE\VILDAGLIPTIN
     Indication: PRODUCT USED FOR UNKNOWN INDICATION
     Dosage: 50/1000 MG, 1 CAP EVERY 12 HOURS
     Route: 065
  18. GENUXAL [Suspect]
     Active Substance: CYCLOPHOSPHAMIDE
     Dosage: AC PROTOCOL; LAST DOSE PRIOR TO EVENT; CYCLOPHOSPHAMIDE 600 MG/M2 + NS OF 250 ML
     Route: 065
     Dates: start: 20191120, end: 20191120

REACTIONS (1)
  - Diarrhoea [Recovered/Resolved]

NARRATIVE: CASE EVENT DATE: 20191129
